FAERS Safety Report 16059950 (Version 4)
Quarter: 2019Q2

REPORT INFORMATION
  Report Type: Spontaneous
  Country: FR (occurrence: FR)
  Receive Date: 20190312
  Receipt Date: 20190528
  Transmission Date: 20190711
  Serious: Yes (Hospitalization, Other)
  Sender: FDA-Public Use
  Company Number: FR-BRISTOL-MYERS SQUIBB COMPANY-BMS-2019-023973

PATIENT
  Age: 75 Year
  Sex: Female
  Weight: 86 kg

DRUGS (12)
  1. BISOCE [Concomitant]
     Active Substance: BISOPROLOL
     Indication: ATRIAL FIBRILLATION
     Route: 065
  2. CO-APROVEL [Concomitant]
     Active Substance: HYDROCHLOROTHIAZIDE\IRBESARTAN
     Indication: HYPERTENSION
     Dosage: 1 TAB, QD
     Route: 048
     Dates: start: 20181130, end: 20190218
  3. ELIQUIS [Suspect]
     Active Substance: APIXABAN
     Indication: PULMONARY EMBOLISM
     Dosage: 10 MILLIGRAM DAILY
     Route: 048
     Dates: start: 20190126
  4. BISOCE [Concomitant]
     Active Substance: BISOPROLOL
     Indication: TACHYCARDIA
     Route: 065
  5. IBRANCE [Suspect]
     Active Substance: PALBOCICLIB
     Indication: BREAST CANCER METASTATIC
     Dosage: 125 MILLIGRAM DAILY
     Route: 048
     Dates: start: 20181203, end: 20190117
  6. IBRANCE [Suspect]
     Active Substance: PALBOCICLIB
     Indication: PRODUCT USED FOR UNKNOWN INDICATION
     Dosage: 125 MILLIGRAM DAILY
     Route: 048
     Dates: start: 20190211, end: 20190214
  7. FASLODEX [Concomitant]
     Active Substance: FULVESTRANT
     Indication: BREAST CANCER METASTATIC
     Dosage: 250 MILLIGRAM, BID
     Route: 030
     Dates: start: 20181203
  8. BISOCE [Concomitant]
     Active Substance: BISOPROLOL
     Indication: ARRHYTHMIA SUPRAVENTRICULAR
     Route: 065
  9. FENOFIBRATE. [Concomitant]
     Active Substance: FENOFIBRATE
     Indication: DYSLIPIDAEMIA
     Dosage: 1 DOSAGE FORM, QD
     Route: 048
     Dates: start: 201811, end: 20190218
  10. INNOHEP [Concomitant]
     Active Substance: TINZAPARIN SODIUM
     Indication: PULMONARY EMBOLISM
     Dosage: 18000 INTERNATIONAL UNIT, QD
     Route: 058
     Dates: start: 20190204, end: 20190218
  11. ELIQUIS [Suspect]
     Active Substance: APIXABAN
     Indication: PRODUCT USED FOR UNKNOWN INDICATION
     Dosage: 5 MILLIGRAM DAILY
     Route: 048
     Dates: end: 20190204
  12. BISOCE [Concomitant]
     Active Substance: BISOPROLOL
     Indication: ARRHYTHMIA
     Dosage: 1 TAB, QD
     Route: 048
     Dates: start: 20190117

REACTIONS (5)
  - Hepatocellular injury [Recovering/Resolving]
  - Prescribed underdose [Unknown]
  - Atrial fibrillation [Unknown]
  - Renal failure [Recovering/Resolving]
  - Pulmonary embolism [Unknown]

NARRATIVE: CASE EVENT DATE: 20190211
